FAERS Safety Report 18935756 (Version 2)
Quarter: 2022Q2

REPORT INFORMATION
  Report Type: Spontaneous
  Country: US (occurrence: US)
  Receive Date: 20210225
  Receipt Date: 20220513
  Transmission Date: 20220720
  Serious: No
  Sender: FDA-Public Use
  Company Number: US-APOTEX-2021AP003729

PATIENT
  Age: 74 Year
  Sex: Male

DRUGS (9)
  1. OLANZAPINE [Suspect]
     Active Substance: OLANZAPINE
     Indication: Mood swings
     Dosage: 10 MILLIGRAM, QD
     Route: 065
     Dates: start: 2005
  2. OLANZAPINE [Suspect]
     Active Substance: OLANZAPINE
     Indication: Psychotic disorder
  3. OLANZAPINE [Suspect]
     Active Substance: OLANZAPINE
     Indication: Major depression
  4. CLONAZEPAM [Concomitant]
     Active Substance: CLONAZEPAM
     Indication: Mood swings
     Dosage: 0.5 MILLIGRAM, QD
     Route: 065
     Dates: start: 2005
  5. CLONAZEPAM [Concomitant]
     Active Substance: CLONAZEPAM
     Indication: Psychotic disorder
  6. CLONAZEPAM [Concomitant]
     Active Substance: CLONAZEPAM
     Indication: Major depression
  7. DULOXETINE [Concomitant]
     Active Substance: DULOXETINE
     Indication: Mood swings
     Dosage: 60 MILLIGRAM, QD
     Route: 065
     Dates: start: 2005
  8. DULOXETINE [Concomitant]
     Active Substance: DULOXETINE
     Indication: Psychotic disorder
  9. DULOXETINE [Concomitant]
     Active Substance: DULOXETINE
     Indication: Major depression

REACTIONS (2)
  - Dysphagia [Not Recovered/Not Resolved]
  - Parkinsonism [Unknown]
